FAERS Safety Report 4593716-8 (Version None)
Quarter: 2005Q1

REPORT INFORMATION
  Report Type: 
  Country: None (occurrence: None)
  Receive Date: 20050224
  Receipt Date: 20041112
  Transmission Date: 20050727
  Serious: No
  Sender: FDA-Public Use
  Company Number: US-BRISTOL-MYERS SQUIBB COMPANY-12769568

PATIENT
  Age: 21 Year
  Sex: Female
  Weight: 44 kg

DRUGS (2)
  1. EXCEDRIN (MIGRAINE) [Suspect]
     Indication: HEADACHE
     Route: 048
     Dates: start: 20041112, end: 20041112
  2. EXCEDRIN (MIGRAINE) [Suspect]
     Indication: HANGOVER
     Route: 048
     Dates: start: 20041112, end: 20041112

REACTIONS (5)
  - CHILLS [None]
  - DIZZINESS [None]
  - PAIN [None]
  - PYREXIA [None]
  - VOMITING [None]
